FAERS Safety Report 24234201 (Version 1)
Quarter: 2024Q3

REPORT INFORMATION
  Report Type: Spontaneous
  Country: US (occurrence: None)
  Receive Date: 20240821
  Receipt Date: 20240821
  Transmission Date: 20241017
  Serious: Yes (Other)
  Sender: Public
  Company Number: None

PATIENT
  Age: 27 Year
  Sex: Female
  Weight: 141.52 kg

DRUGS (2)
  1. COSENTYX [Suspect]
     Active Substance: SECUKINUMAB
     Indication: Hidradenitis
     Dosage: 300 ONCE MONTHLY SUBCUTANEOUS
     Route: 058
     Dates: start: 20240510
  2. ADVIL [Concomitant]

REACTIONS (1)
  - Dry skin [None]

NARRATIVE: CASE EVENT DATE: 20240821
